FAERS Safety Report 10583680 (Version 1)
Quarter: 2014Q4

REPORT INFORMATION
  Report Type: Spontaneous
  Country: IT (occurrence: None)
  Receive Date: 20141112
  Receipt Date: 20141112
  Transmission Date: 20150529
  Serious: Yes (Hospitalization)
  Sender: FDA-Public Use
  Company Number: IMP_08077_2014

PATIENT
  Age: 17 Year
  Sex: Female

DRUGS (1)
  1. BACLOFEN (BACLOFEN) [Suspect]
     Active Substance: BACLOFEN
     Indication: DYSTONIA
     Dosage: APPROXIMATELY 625 MG (NOT THE USUAL DOSE) ORAL
     Route: 048

REACTIONS (22)
  - Blood bilirubin increased [None]
  - Drug level increased [None]
  - Hyporeflexia [None]
  - Toxicity to various agents [None]
  - Altered state of consciousness [None]
  - Conversion disorder [None]
  - Intentional overdose [None]
  - Confusional state [None]
  - Bradycardia [None]
  - Substance use [None]
  - Motor dysfunction [None]
  - Electroencephalogram abnormal [None]
  - Coma [None]
  - Amnesia [None]
  - Headache [None]
  - Areflexia [None]
  - Respiratory depression [None]
  - Somnolence [None]
  - Vertigo [None]
  - Vomiting [None]
  - Agitation [None]
  - Dyspnoea [None]
